FAERS Safety Report 9448415 (Version 2)
Quarter: 2013Q3

REPORT INFORMATION
  Report Type: Report from Study
  Country: BR (occurrence: BR)
  Receive Date: 20130808
  Receipt Date: 20130903
  Transmission Date: 20140515
  Serious: Yes (Hospitalization, Other)
  Sender: FDA-Public Use
  Company Number: PHHY2013BR083279

PATIENT
  Age: 66 Year
  Sex: Male
  Weight: 72 kg

DRUGS (8)
  1. CORDAREX [Concomitant]
     Indication: BLOOD PRESSURE ABNORMAL
     Dosage: 5 MG, UNK
  2. ALOPURINOL [Concomitant]
     Indication: BLOOD URIC ACID
     Dosage: 300 MG, UNK
  3. TREZOR [Concomitant]
     Indication: BLOOD CHOLESTEROL
     Dosage: 10 MG, UNK
  4. SOMALGIN [Concomitant]
     Indication: ANTICOAGULANT THERAPY
     Dosage: UNK UKN, UNK
  5. BENICAR [Concomitant]
     Indication: CARDIAC DISORDER
     Dosage: 400 MG, UNK
  6. GALVUS [Suspect]
     Indication: DIABETES MELLITUS
     Dosage: UNK UKN, BID
     Route: 048
  7. CONCARDIO [Concomitant]
     Indication: CARDIAC DISORDER
     Dosage: 2.5 MG, UNK
     Dates: start: 201303
  8. GLIFAGE [Concomitant]
     Indication: DIABETES MELLITUS
     Dosage: 500 MG, UNK
     Dates: end: 201303

REACTIONS (3)
  - Haemorrhagic cerebral infarction [Recovered/Resolved]
  - Cerebral haemorrhage [Recovered/Resolved]
  - Prostatic specific antigen increased [Unknown]
